FAERS Safety Report 11118088 (Version 2)
Quarter: 2015Q2

REPORT INFORMATION
  Report Type: Spontaneous
  Country: US (occurrence: US)
  Receive Date: 20150518
  Receipt Date: 20150627
  Transmission Date: 20150821
  Serious: No
  Sender: FDA-Public Use
  Company Number: US-BRISTOL-MYERS SQUIBB COMPANY-BMS-2015-030810

PATIENT
  Age: 47 Year
  Sex: Female

DRUGS (1)
  1. SPRYCEL [Suspect]
     Active Substance: DASATINIB
     Indication: PRODUCT USED FOR UNKNOWN INDICATION
     Dosage: 50 MG, QD
     Route: 048
     Dates: start: 20140830

REACTIONS (13)
  - Alopecia [Unknown]
  - Peripheral swelling [Recovering/Resolving]
  - Acne [Recovering/Resolving]
  - Dysgeusia [Unknown]
  - Pain [Unknown]
  - Fatigue [Unknown]
  - Gastric disorder [Unknown]
  - Pain in extremity [Unknown]
  - Joint swelling [Recovering/Resolving]
  - Headache [Recovering/Resolving]
  - Local swelling [Recovering/Resolving]
  - Arthralgia [Recovering/Resolving]
  - Infection [Recovering/Resolving]

NARRATIVE: CASE EVENT DATE: 201412
